FAERS Safety Report 6927778-7 (Version None)
Quarter: 2010Q3

REPORT INFORMATION
  Report Type: 
  Country: None (occurrence: None)
  Receive Date: 20100817
  Receipt Date: 20100813
  Transmission Date: 20110219
  Serious: Yes (Life-Threatening)
  Sender: FDA-Public Use
  Company Number: ZA-B.I. PHARMACEUTICALS,INC./RIDGEFIELD-2010-BP-09201BP

PATIENT
  Sex: Male
  Weight: 1.9 kg

DRUGS (3)
  1. VIRAMUNE [Suspect]
     Indication: VERTICAL INFECTION TRANSMISSION
     Dosage: 8 MG
     Route: 048
     Dates: start: 20100715, end: 20100717
  2. ZIDOVUDINE [Suspect]
     Indication: VERTICAL INFECTION TRANSMISSION
     Dosage: 16 MG
     Route: 048
     Dates: start: 20100715
  3. ZIDOVUDINE [Suspect]
     Dosage: 16 MG
     Route: 048
     Dates: start: 20100719, end: 20100719

REACTIONS (1)
  - NEUTROPENIA [None]
